FAERS Safety Report 6930806-6 (Version None)
Quarter: 2010Q3

REPORT INFORMATION
  Report Type: 
  Country: None (occurrence: None)
  Receive Date: 20100818
  Receipt Date: 20100806
  Transmission Date: 20110219
  Serious: No
  Sender: FDA-Public Use
  Company Number: US-B.I. PHARMACEUTICALS,INC./RIDGEFIELD-2010-BP-08965BP

PATIENT
  Age: 76 Year
  Sex: Female

DRUGS (2)
  1. ZANTAC 75 [Suspect]
     Indication: GASTROOESOPHAGEAL REFLUX DISEASE
     Dosage: 75 MG
     Route: 048
     Dates: start: 20100806, end: 20100806
  2. ADVAIR DISKUS 100/50 [Concomitant]
     Indication: LUNG DISORDER
     Route: 055

REACTIONS (1)
  - FEELING COLD [None]
